FAERS Safety Report 8499841-3 (Version None)
Quarter: 2012Q3

REPORT INFORMATION
  Report Type: 
  Country: None (occurrence: None)
  Receive Date: 20120710
  Receipt Date: 20120705
  Transmission Date: 20120928
  Serious: Yes (Other)
  Sender: FDA-Public Use
  Company Number: US-PFIZER INC-2012161638

PATIENT
  Sex: Female
  Weight: 79.819 kg

DRUGS (3)
  1. ALBUTEROL [Concomitant]
     Dosage: UNK, 3X/DAY
  2. ASPIRIN [Concomitant]
     Dosage: 81 MG, UNK
  3. REVATIO [Suspect]
     Indication: DYSPNOEA
     Dosage: 20 MG, 3X/DAY
     Route: 048
     Dates: start: 20120601

REACTIONS (2)
  - DEAFNESS UNILATERAL [None]
  - BLOOD CHOLESTEROL DECREASED [None]
